FAERS Safety Report 6435455-4 (Version None)
Quarter: 2009Q4

REPORT INFORMATION
  Report Type: 
  Country: None (occurrence: None)
  Receive Date: 20091106
  Receipt Date: 20081203
  Transmission Date: 20100525
  Serious: Yes (Other)
  Sender: FDA-Public Use
  Company Number: 2009EU004198

PATIENT
  Sex: Male
  Weight: 1.6 kg

DRUGS (6)
  1. PROGRAF [Suspect]
     Dosage: D/, TRANSPLACENTAL
     Route: 064
  2. IMUREL (AZATHIOPRINE SODIUM) [Concomitant]
  3. PREDNISOLONE [Concomitant]
  4. VIBRAMYCIN [Concomitant]
  5. LHRH (GONADORELIN ACETATE) [Concomitant]
  6. PUREGON (FOLLITROPIN BETA) [Concomitant]

REACTIONS (4)
  - CAESAREAN SECTION [None]
  - FOETAL HEART RATE ABNORMAL [None]
  - MATERNAL DRUGS AFFECTING FOETUS [None]
  - PREMATURE BABY [None]
